FAERS Safety Report 9538020 (Version 2)
Quarter: 2013Q3

REPORT INFORMATION
  Report Type: Spontaneous
  Country: JP (occurrence: JP)
  Receive Date: 20130919
  Receipt Date: 20130926
  Transmission Date: 20140515
  Serious: Yes (Other)
  Sender: FDA-Public Use
  Company Number: JP-ROCHE-1278301

PATIENT
  Age: 58 Year
  Sex: Male
  Weight: 54 kg

DRUGS (6)
  1. AVASTIN [Suspect]
     Indication: COLON CANCER METASTATIC
     Route: 041
     Dates: start: 20120830, end: 20130822
  2. XELODA [Suspect]
     Indication: COLON CANCER
     Dosage: 2 WEEKS ADMINISTRATION FOLLOWED BY 1 WEEK REST
     Route: 048
     Dates: start: 20120830, end: 20130822
  3. KYTRIL [Suspect]
     Indication: PROPHYLAXIS OF NAUSEA AND VOMITING
     Route: 041
     Dates: start: 20120830
  4. ELPLAT [Concomitant]
     Indication: COLON CANCER METASTATIC
     Route: 041
     Dates: start: 20120830, end: 20130314
  5. DECADRON [Concomitant]
     Indication: ALLERGY PROPHYLAXIS
     Route: 041
     Dates: start: 20120830
  6. METHYCOBAL [Concomitant]
     Indication: PROPHYLAXIS
     Route: 048
     Dates: start: 20120830

REACTIONS (1)
  - Blood creatine phosphokinase increased [Recovering/Resolving]
